FAERS Safety Report 5188134-8 (Version None)
Quarter: 2006Q4

REPORT INFORMATION
  Report Type: 
  Country: None (occurrence: None)
  Receive Date: 20061221
  Receipt Date: 20061127
  Transmission Date: 20070319
  Serious: Yes (Other)
  Sender: FDA-Public Use
  Company Number: PHEH2006US14622

PATIENT
  Age: 64 Year
  Sex: Female

DRUGS (20)
  1. GLEEVEC [Suspect]
     Indication: CHRONIC MYELOID LEUKAEMIA
     Dosage: 800 MG, QD
     Route: 048
     Dates: start: 20040401
  2. PLAQUENIL [Concomitant]
     Indication: SYSTEMIC LUPUS ERYTHEMATOSUS
     Dosage: 200 MG, BID
     Route: 048
  3. LANTUS [Concomitant]
     Indication: DIABETES MELLITUS INSULIN-DEPENDENT
     Dosage: 12 U, PRN
     Route: 058
  4. HUMALOG [Concomitant]
     Indication: DIABETES MELLITUS INSULIN-DEPENDENT
     Dosage: UNK U, QD
     Route: 058
  5. AMARYL [Concomitant]
     Indication: DIABETES MELLITUS INSULIN-DEPENDENT
     Dosage: 1 MG, QD
     Route: 048
  6. SYNTHROID [Concomitant]
     Indication: HYPOTHYROIDISM
     Dosage: 0.5 MG, QD
     Route: 048
  7. DIGOXIN [Suspect]
     Indication: HEART RATE IRREGULAR
     Route: 048
     Dates: end: 20060401
  8. POTASSIUM CHLORIDE [Concomitant]
     Indication: CHRONIC MYELOID LEUKAEMIA
     Dosage: 20 MG, QD
     Route: 048
  9. FUROSEMIDE INTENSOL [Concomitant]
     Indication: FLUID RETENTION
     Dosage: 20 MG, QD
     Route: 048
  10. SPIRONOLACTONE [Concomitant]
     Indication: FLUID RETENTION
     Dosage: 50 MG, BID
     Route: 048
  11. ADVAIR DISKUS 100/50 [Concomitant]
     Indication: ASTHMA
     Dosage: 1 DF, BID
  12. SINGULAIR [Concomitant]
     Indication: ASTHMA
     Dosage: 10 MG, QD
     Route: 048
  13. ZYRTEC [Concomitant]
     Indication: ASTHMA
     Dosage: 10 MG, QHS
     Route: 048
  14. ESTRACE [Concomitant]
     Dosage: 0.5 MG, QD
     Route: 048
  15. CYMBALTA [Concomitant]
     Dosage: 60 MG, QHS
     Route: 048
  16. AMBIEN [Concomitant]
     Dosage: 12.5 MG, QHS
     Route: 048
  17. HYOSCYAMINE [Concomitant]
     Dosage: 0.125 MG, PRN
     Route: 060
  18. NEXIUM [Concomitant]
     Indication: GASTROOESOPHAGEAL REFLUX DISEASE
     Dosage: UNK, QD
     Route: 048
  19. NUTRITION SUPPLEMENTS [Concomitant]
     Dosage: UNK, QD
     Route: 048
  20. VITAMINS [Concomitant]
     Dosage: UNK, QD
     Route: 048

REACTIONS (20)
  - ASTHENIA [None]
  - BONE PAIN [None]
  - DIARRHOEA [None]
  - DRUG INTERACTION [None]
  - DYSPNOEA [None]
  - FATIGUE [None]
  - GASTROOESOPHAGEAL REFLUX DISEASE [None]
  - GINGIVITIS [None]
  - GLOSSITIS [None]
  - HEADACHE [None]
  - HYPOAESTHESIA [None]
  - JAW DISORDER [None]
  - MUSCLE SPASMS [None]
  - OEDEMA [None]
  - ORAL CANDIDIASIS [None]
  - PURPURA [None]
  - RASH [None]
  - SKIN HAEMORRHAGE [None]
  - THERAPEUTIC AGENT TOXICITY [None]
  - VASCULITIS [None]
